FAERS Safety Report 18603785 (Version 1)
Quarter: 2020Q4

REPORT INFORMATION
  Report Type: Other
  Country: ES (occurrence: ES)
  Receive Date: 20201211
  Receipt Date: 20201211
  Transmission Date: 20210114
  Serious: Yes (Other)
  Sender: FDA-Public Use
  Company Number: ES-ROCHE-2729607

PATIENT

DRUGS (1)
  1. OMALIZUMAB. [Suspect]
     Active Substance: OMALIZUMAB
     Indication: MILK ALLERGY
     Dosage: 250 ML, QD, DOSE BETWEEN 12- 16 WEEKS
     Route: 048

REACTIONS (3)
  - Off label use [Unknown]
  - Anaphylactic reaction [Unknown]
  - Product use in unapproved indication [Unknown]
